FAERS Safety Report 24752263 (Version 1)
Quarter: 2024Q4

REPORT INFORMATION
  Report Type: Spontaneous
  Country: GB (occurrence: GB)
  Receive Date: 20241219
  Receipt Date: 20241219
  Transmission Date: 20250115
  Serious: Yes (Death)
  Sender: CELLTRION
  Company Number: GB-CELLTRION INC.-2024GB031783

PATIENT

DRUGS (1)
  1. INFLIXIMAB [Suspect]
     Active Substance: INFLIXIMAB
     Indication: Rheumatoid arthritis
     Dosage: 120MG PRE FILLED PEN EVERY 2 WEEKS (START DATE: UNKNOEN; STOP DATE: 29/11)
     Route: 058

REACTIONS (3)
  - Death [Fatal]
  - Feeling abnormal [Fatal]
  - Eating disorder [Fatal]
